FAERS Safety Report 9844013 (Version 1)
Quarter: 2013Q4

REPORT INFORMATION
  Report Type: Spontaneous
  Country: US (occurrence: None)
  Receive Date: 20131223
  Receipt Date: 20131223
  Transmission Date: 20140711
  Serious: No
  Sender: FDA-Public Use
  Company Number: 1000048914

PATIENT
  Age: 76 Year
  Sex: Male

DRUGS (3)
  1. LINZESS (LINACLOTIDE) (290 MICROGRAM, CAPSULES) [Suspect]
     Indication: ABDOMINAL PAIN UPPER
     Dosage: 290MCG (290 MCG, 1 IN 1 D), ORAL
     Route: 048
     Dates: start: 20130903
  2. TOPIRAMATE (TOPIRAMATE) [Suspect]
     Indication: HEADACHE
     Dosage: TWICE DAILY (TWICE DAILY)
     Dates: start: 20130903
  3. OXYCODONE (OXYCODONE) (OXYCODONE) [Concomitant]

REACTIONS (3)
  - Off label use [None]
  - Abdominal pain upper [None]
  - Abdominal discomfort [None]
